FAERS Safety Report 8022720-2 (Version None)
Quarter: 2012Q1

REPORT INFORMATION
  Report Type: 
  Country: None (occurrence: None)
  Receive Date: 20120104
  Receipt Date: 20111227
  Transmission Date: 20120608
  Serious: Yes (Hospitalization, Other)
  Sender: FDA-Public Use
  Company Number: PHHY2011DE113484

PATIENT
  Age: 73 Year
  Sex: Female
  Weight: 49 kg

DRUGS (4)
  1. SUTENT [Suspect]
     Indication: METASTATIC RENAL CELL CARCINOMA
     Dosage: 50 MG, QD
     Route: 048
     Dates: start: 20091104, end: 20091113
  2. SUTENT [Suspect]
     Dosage: 50 MG, DAILY
     Route: 048
     Dates: start: 20111213
  3. NEXAVAR [Concomitant]
  4. EVEROLIMUS [Suspect]
     Indication: METASTATIC RENAL CELL CARCINOMA

REACTIONS (11)
  - ILEUS [None]
  - C-REACTIVE PROTEIN INCREASED [None]
  - HAEMATOCHEZIA [None]
  - LIVER INJURY [None]
  - SHORT-BOWEL SYNDROME [None]
  - NEOPLASM PROGRESSION [None]
  - WHITE BLOOD CELL COUNT INCREASED [None]
  - DIVERTICULUM [None]
  - DIARRHOEA [None]
  - METASTASIS [None]
  - NEOPLASM MALIGNANT [None]
